FAERS Safety Report 4355225-0 (Version None)
Quarter: 2004Q2

REPORT INFORMATION
  Report Type: 
  Country: None (occurrence: None)
  Receive Date: 20040505
  Receipt Date: 20040428
  Transmission Date: 20050107
  Serious: Yes (Life-Threatening)
  Sender: FDA-Public Use
  Company Number: 2004CG00816

PATIENT
  Age: 11 Year
  Sex: Male
  Weight: 40 kg

DRUGS (9)
  1. MOPRAL [Suspect]
  2. NEUPOGEN [Suspect]
     Dosage: 210 UG DAILY IV
     Route: 042
     Dates: start: 20040317, end: 20040325
  3. SOLU-MEDROL [Suspect]
  4. ZOVIRAX [Suspect]
  5. FLUCONAZOLE [Suspect]
  6. CYCLOSPORINE [Suspect]
  7. FORTUM [Suspect]
  8. TARGOCID [Suspect]
  9. RIVOTRIL [Suspect]

REACTIONS (3)
  - BRONCHOSPASM [None]
  - DYSPNOEA [None]
  - TACHYCARDIA [None]
